FAERS Safety Report 8991407 (Version 1)
Quarter: 2012Q4

REPORT INFORMATION
  Report Type: 
  Country: JP (occurrence: JP)
  Receive Date: 20121229
  Receipt Date: 20121229
  Transmission Date: 20130627
  Serious: Yes (Other)
  Sender: FDA-Public Use
  Company Number: JP-009507513-2012SP026702

PATIENT
  Age: 55 Year
  Sex: Male
  Weight: 73 kg

DRUGS (5)
  1. PEGINTRON [Suspect]
     Indication: CHRONIC HEPATITIS C
     Dosage: 1.5 Microgram per kilogram, qw
     Route: 058
     Dates: start: 20120307
  2. REBETOL [Suspect]
     Indication: CHRONIC HEPATITIS C
     Dosage: 800 mg, qd
     Route: 048
     Dates: start: 20120307
  3. TELAVIC [Suspect]
     Indication: CHRONIC HEPATITIS C
     Dosage: 2250 mg, qd
     Route: 048
     Dates: start: 20120307, end: 20120404
  4. DERMOVATE [Concomitant]
     Dosage: UNK UNK, PRN
     Dates: start: 20120328
  5. TAKEPRON [Concomitant]
     Indication: PROPHYLAXIS
     Dosage: 15 mg, qd, formulation: POR
     Route: 048
     Dates: start: 20120404

REACTIONS (1)
  - Drug eruption [Recovering/Resolving]
